FAERS Safety Report 8508664-8 (Version None)
Quarter: 2012Q3

REPORT INFORMATION
  Report Type: 
  Country: None (occurrence: None)
  Receive Date: 20120713
  Receipt Date: 20120706
  Transmission Date: 20120928
  Serious: Yes (Hospitalization, Other)
  Sender: FDA-Public Use
  Company Number: US-PFIZER INC-2012163835

PATIENT
  Age: 46 Year
  Sex: Female

DRUGS (15)
  1. XANAX [Suspect]
     Dosage: UNK
     Dates: end: 20120405
  2. ESTRACE [Concomitant]
     Indication: HORMONE REPLACEMENT THERAPY
     Dosage: UNK
  3. AMLODIPINE [Concomitant]
     Indication: HYPERTENSION
     Dosage: UNK
  4. SOMA [Suspect]
     Dosage: UNK
     Dates: end: 20120405
  5. PATANOL [Concomitant]
     Dosage: UNK
  6. VENTOLIN [Concomitant]
     Dosage: UNK
  7. SPIRIVA [Concomitant]
     Dosage: UNK
  8. METOPROLOL [Concomitant]
     Indication: HYPERTENSION
  9. NEXIUM [Concomitant]
     Dosage: UNK
  10. NASONEX [Concomitant]
     Dosage: UNK
  11. BENTYL [Concomitant]
     Dosage: UNK
  12. DALIRESP [Suspect]
     Indication: CHRONIC OBSTRUCTIVE PULMONARY DISEASE
     Dosage: 500 UG, UNK
     Dates: start: 20111101, end: 20120411
  13. OXYCONTIN [Suspect]
     Dosage: UNK
     Dates: end: 20120405
  14. LIDOCAINE [Concomitant]
     Indication: PAIN
     Dosage: UNK
  15. NORCO [Concomitant]
     Dosage: 10/325 MG

REACTIONS (12)
  - PAIN [None]
  - PANIC ATTACK [None]
  - PALPITATIONS [None]
  - DYSPNOEA [None]
  - INSOMNIA [None]
  - NAUSEA [None]
  - TREMOR [None]
  - DECREASED APPETITE [None]
  - ANXIETY [None]
  - ABDOMINAL PAIN [None]
  - VOMITING [None]
  - DELUSION [None]
